FAERS Safety Report 9042465 (Version 1)
Quarter: 2013Q1

REPORT INFORMATION
  Report Type: Report from Study
  Country: US (occurrence: US)
  Receive Date: 20130129
  Receipt Date: 20130129
  Transmission Date: 20140127
  Serious: No
  Sender: FDA-Public Use
  Company Number: US-ABBOTT-12P-163-0905192-00

PATIENT
  Sex: Female

DRUGS (4)
  1. HUMIRA 40 MG/0.8 ML PEN [Suspect]
     Indication: PSORIASIS
     Dosage: 80MG DAY 1
     Route: 050
     Dates: start: 201201, end: 201201
  2. HUMIRA 40 MG/0.8 ML PEN [Suspect]
     Dosage: DAY 8
  3. HUMIRA 40 MG/0.8 ML PEN [Suspect]
     Dosage: DAY 22
  4. HUMIRA 40 MG/0.8 ML PEN [Suspect]

REACTIONS (2)
  - Injection site erythema [Recovered/Resolved]
  - Injection site bruising [Recovered/Resolved]
